FAERS Safety Report 7624824-2 (Version None)
Quarter: 2011Q3

REPORT INFORMATION
  Report Type: 
  Country: None (occurrence: None)
  Receive Date: 20110720
  Receipt Date: 20110713
  Transmission Date: 20111222
  Serious: Yes (Hospitalization, Other)
  Sender: FDA-Public Use
  Company Number: RO-ABBOTT-11P-135-0838628-00

PATIENT
  Sex: Male

DRUGS (8)
  1. COMBIVIR [Concomitant]
     Indication: HIV INFECTION
     Dates: start: 20101201
  2. MICROPIRIN [Concomitant]
     Indication: DIABETES MELLITUS
     Dates: start: 20050317
  3. KALETRA [Suspect]
     Indication: HIV INFECTION
     Route: 048
     Dates: start: 20101201
  4. VIREAD [Concomitant]
     Indication: HIV INFECTION
     Dates: start: 20101201
  5. LIPITOR [Concomitant]
     Indication: HYPERLIPIDAEMIA
     Dates: start: 20100308
  6. ISENTRESS [Concomitant]
     Indication: HIV INFECTION
     Dates: start: 20101201
  7. NOVOLOG [Concomitant]
     Indication: DIABETES MELLITUS
     Dates: start: 20100827
  8. RAMIPRIL [Concomitant]
     Indication: HYPERTENSION
     Dates: start: 20100322

REACTIONS (2)
  - RIGHT VENTRICULAR FAILURE [None]
  - ASCITES [None]
